FAERS Safety Report 8510272-X (Version None)
Quarter: 2012Q3

REPORT INFORMATION
  Report Type: 
  Country: None (occurrence: None)
  Receive Date: 20120713
  Receipt Date: 20120705
  Transmission Date: 20120928
  Serious: Yes (Hospitalization)
  Sender: FDA-Public Use
  Company Number: MY-BAXTER-2012BAX010703

PATIENT
  Sex: Female

DRUGS (1)
  1. SUPRANE [Suspect]
     Indication: SURGERY

REACTIONS (2)
  - JAUNDICE [None]
  - POST PROCEDURAL COMPLICATION [None]
